FAERS Safety Report 9023745 (Version 5)
Quarter: 2015Q4

REPORT INFORMATION
  Report Type: Spontaneous
  Country: US (occurrence: US)
  Receive Date: 20130121
  Receipt Date: 20151008
  Transmission Date: 20160305
  Serious: Yes (Other)
  Sender: FDA-Public Use
  Company Number: US-GLAXOSMITHKLINE-A0984613A

PATIENT
  Sex: Male

DRUGS (3)
  1. LISINOPRIL. [Concomitant]
     Active Substance: LISINOPRIL
     Dosage: UNK
  2. METFORMIN [Suspect]
     Active Substance: METFORMIN HYDROCHLORIDE
     Indication: PRODUCT USED FOR UNKNOWN INDICATION
     Dosage: UNK
  3. AVANDARYL [Suspect]
     Active Substance: GLIMEPIRIDE\ROSIGLITAZONE MALEATE
     Indication: TYPE 2 DIABETES MELLITUS
     Dosage: 1 DF, 1D
     Route: 048
     Dates: start: 2009

REACTIONS (10)
  - Lipoma [Not Recovered/Not Resolved]
  - Unevaluable event [Unknown]
  - Fatigue [Recovered/Resolved]
  - Abnormal faeces [Unknown]
  - Anal fissure [Unknown]
  - Intentional product use issue [Unknown]
  - Haemorrhoids [Recovered/Resolved]
  - Hypoglycaemia [Recovered/Resolved]
  - Asthenia [Recovered/Resolved]
  - Anal haemorrhage [Unknown]

NARRATIVE: CASE EVENT DATE: 2009
